FAERS Safety Report 8530769-6 (Version None)
Quarter: 2012Q3

REPORT INFORMATION
  Report Type: 
  Country: None (occurrence: None)
  Receive Date: 20120723
  Receipt Date: 20120719
  Transmission Date: 20120928
  Serious: Yes (Hospitalization)
  Sender: FDA-Public Use
  Company Number: PHHY2012FR053343

PATIENT
  Sex: Female
  Weight: 73 kg

DRUGS (6)
  1. ZOLEDRONOC ACID [Suspect]
     Dosage: UNK UKN, UNK
     Route: 042
     Dates: start: 20100401
  2. AREDIA [Suspect]
     Indication: SPINAL CORD INJURY THORACIC
     Dosage: UNK UKN, UNK
     Route: 042
     Dates: start: 20090401
  3. CANDESARTAN CILEXETIL AND HYDROCHLOROTHIAZIDE [Concomitant]
     Indication: HYPERTENSION
     Dosage: 1 DF (16MG/12.5MG), QD
     Route: 048
     Dates: start: 20070101
  4. ZOLEDRONOC ACID [Suspect]
     Indication: SPINAL COMPRESSION FRACTURE
     Dosage: UNK UKN, UNK
     Route: 042
     Dates: start: 20090401
  5. ZOLEDRONOC ACID [Suspect]
     Dosage: UNK UKN, UNK
     Route: 042
     Dates: start: 20110401
  6. IMOVANE [Concomitant]
     Indication: INSOMNIA
     Dosage: 1 DF, QD
     Route: 048

REACTIONS (3)
  - FRACTURE DISPLACEMENT [None]
  - FALL [None]
  - FEMUR FRACTURE [None]
